FAERS Safety Report 19803662 (Version 1)
Quarter: 2021Q3

REPORT INFORMATION
  Report Type: Spontaneous
  Country: US (occurrence: US)
  Receive Date: 20210908
  Receipt Date: 20210908
  Transmission Date: 20211014
  Serious: Yes (Hospitalization)
  Sender: FDA-Public Use
  Company Number: None

PATIENT
  Sex: Female

DRUGS (12)
  1. AMBRISENTAN 10MG TAB [Suspect]
     Active Substance: AMBRISENTAN
     Indication: PULMONARY HYPERTENSION
     Route: 048
  2. POTASSIUM CHLORIDE. [Concomitant]
     Active Substance: POTASSIUM CHLORIDE
  3. SERTRALINE HCL [Concomitant]
     Active Substance: SERTRALINE HYDROCHLORIDE
  4. ADVAIR DISKUS [Concomitant]
     Active Substance: FLUTICASONE PROPIONATE\SALMETEROL XINAFOATE
  5. MOTRIN [Concomitant]
     Active Substance: IBUPROFEN
  6. LETAIRIS 5MG TAB 61958080101 [Concomitant]
  7. ADCIRCA [Concomitant]
     Active Substance: TADALAFIL
  8. LORAZEPAM. [Concomitant]
     Active Substance: LORAZEPAM
  9. BUMETANIDE. [Concomitant]
     Active Substance: BUMETANIDE
  10. COREG [Concomitant]
     Active Substance: CARVEDILOL
  11. VENTOLIN HFA [Concomitant]
     Active Substance: ALBUTEROL SULFATE
  12. TADALAFIL. [Concomitant]
     Active Substance: TADALAFIL

REACTIONS (1)
  - Hospitalisation [None]
